FAERS Safety Report 13713716 (Version 1)
Quarter: 2017Q3

REPORT INFORMATION
  Report Type: Report from Study
  Country: US (occurrence: US)
  Receive Date: 20170704
  Receipt Date: 20170704
  Transmission Date: 20171127
  Serious: Yes (Death, Other)
  Sender: FDA-Public Use
  Company Number: US-ROCHE-1955527

PATIENT

DRUGS (1)
  1. BEVACIZUMAB. [Suspect]
     Active Substance: BEVACIZUMAB
     Indication: METASTASES TO MENINGES
     Route: 065

REACTIONS (9)
  - Gait disturbance [Not Recovered/Not Resolved]
  - Death [Fatal]
  - White blood cell disorder [Unknown]
  - Neutrophil count abnormal [Recovered/Resolved]
  - Fatigue [Not Recovered/Not Resolved]
  - Lymphopenia [Recovered/Resolved]
  - Hemiparesis [Not Recovered/Not Resolved]
  - Neutrophil count abnormal [Recovered/Resolved]
  - White blood cell disorder [Recovered/Resolved]

NARRATIVE: CASE EVENT DATE: 20101109
